FAERS Safety Report 5990758-2 (Version None)
Quarter: 2008Q4

REPORT INFORMATION
  Report Type: 
  Country: None (occurrence: None)
  Receive Date: 20081202
  Receipt Date: 20080324
  Transmission Date: 20090506
  Serious: Yes (Other)
  Sender: FDA-Public Use
  Company Number: WAES 0803USA03823

PATIENT
  Age: 58 Year
  Sex: Female
  Weight: 71.6683 kg

DRUGS (3)
  1. FOSAMAX [Suspect]
     Indication: BONE DENSITY DECREASED
     Dosage: 60 MG/DAILY/PO
     Route: 048
     Dates: start: 20000401
  2. ACTONEL [Suspect]
  3. PEPCID [Concomitant]

REACTIONS (8)
  - ABDOMINAL DISCOMFORT [None]
  - BREAST CANCER METASTATIC [None]
  - DRUG INTOLERANCE [None]
  - DYSPEPSIA [None]
  - GASTROINTESTINAL DISORDER [None]
  - GASTROOESOPHAGEAL REFLUX DISEASE [None]
  - HEPATIC MASS [None]
  - OVERDOSE [None]
